FAERS Safety Report 5486512-0 (Version None)
Quarter: 2007Q3

REPORT INFORMATION
  Report Type: 
  Country: None (occurrence: None)
  Receive Date: 20070919
  Receipt Date: 20070522
  Transmission Date: 20080115
  Serious: No
  Sender: FDA-Public Use
  Company Number: 2007RL000299

PATIENT
  Age: 68 Year
  Sex: Female
  Weight: 68.9467 kg

DRUGS (2)
  1. OMACOR [Suspect]
     Indication: BLOOD TRIGLYCERIDES INCREASED
     Dosage: 4 GM;QD;PO
     Route: 048
     Dates: start: 20070101
  2. BISOPROLOL FUMARATE [Concomitant]

REACTIONS (4)
  - BLOOD CHOLESTEROL INCREASED [None]
  - LOW DENSITY LIPOPROTEIN INCREASED [None]
  - NON-HIGH-DENSITY LIPOPROTEIN CHOLESTEROL INCREASED [None]
  - TREATMENT NONCOMPLIANCE [None]
